FAERS Safety Report 8334533-2 (Version None)
Quarter: 2012Q2

REPORT INFORMATION
  Report Type: 
  Country: None (occurrence: None)
  Receive Date: 20120503
  Receipt Date: 20120426
  Transmission Date: 20120825
  Serious: Yes (Hospitalization)
  Sender: FDA-Public Use
  Company Number: IT-BRISTOL-MYERS SQUIBB COMPANY-16464240

PATIENT
  Age: 79 Year
  Sex: Male

DRUGS (6)
  1. MEGACE [Suspect]
     Indication: INCREASED APPETITE
     Dosage: 160 MG PER SQUARE METER OF BODY SURFACE/DAY INTERR ON 31OCT2011
     Route: 048
     Dates: start: 20110925
  2. TAMSULOSIN HCL [Concomitant]
  3. ALLOPURINOL [Concomitant]
     Route: 048
  4. LEVOTHYROXINE SODIUM [Concomitant]
     Indication: POST PROCEDURAL HYPOTHYROIDISM
     Route: 048
     Dates: start: 19950130, end: 20111123
  5. CORDARONE [Suspect]
     Indication: ARRHYTHMIA
     Route: 048
     Dates: start: 20111018, end: 20111110
  6. ZANEDIP [Concomitant]
     Route: 048

REACTIONS (1)
  - HYPERTHYROIDISM [None]
